FAERS Safety Report 5798659-X (Version None)
Quarter: 2008Q2

REPORT INFORMATION
  Report Type: 
  Country: None (occurrence: None)
  Receive Date: 20080630
  Receipt Date: 20080612
  Transmission Date: 20081010
  Serious: Yes (Hospitalization)
  Sender: FDA-Public Use
  Company Number: DSA_32062_2008

PATIENT
  Sex: Male

DRUGS (4)
  1. MONO-TILDIEM (MONO-TILDIEM - DILTIAZEM HYDROCHLORIDE (SLOW RELEASE) 30 [Suspect]
     Indication: HYPERTENSION
     Dosage: (300 MG QD ORAL)
     Route: 048
     Dates: start: 20080418, end: 20080422
  2. TRIATEC /00885601/ (TRIATEC - RAMIPRIL) 2.5 MG (NOT SPECIFIED) [Suspect]
     Indication: HYPERTENSION
     Dosage: (2.5 MG, ORAL)
     Route: 048
     Dates: start: 20080418, end: 20080422
  3. ASPEGIC 1000 [Concomitant]
  4. ZOCOR [Concomitant]

REACTIONS (4)
  - ANGIOEDEMA [None]
  - DYSPHAGIA [None]
  - MACROGLOSSIA [None]
  - SALIVARY GLAND PAIN [None]
